FAERS Safety Report 4938498-2 (Version None)
Quarter: 2006Q1

REPORT INFORMATION
  Report Type: 
  Country: None (occurrence: None)
  Receive Date: 20060308
  Receipt Date: 20060308
  Transmission Date: 20060701
  Serious: Yes (Disabling)
  Sender: FDA-Public Use
  Company Number: None

PATIENT
  Age: 25 Year
  Sex: Female
  Weight: 57.6 kg

DRUGS (1)
  1. VANCOMYCIN [Suspect]
     Indication: PREOPERATIVE CARE
     Dosage: 1 GRAM ONE TIME IV
     Route: 042
     Dates: start: 20060307, end: 20060307

REACTIONS (2)
  - ERYTHEMA [None]
  - PRURITUS [None]
